FAERS Safety Report 24758811 (Version 3)
Quarter: 2025Q1

REPORT INFORMATION
  Report Type: Spontaneous
  Country: US (occurrence: US)
  Receive Date: 20241220
  Receipt Date: 20250321
  Transmission Date: 20250408
  Serious: Yes (Other)
  Sender: MYLAN
  Company Number: US-MYLANLABS-2024M1112688

PATIENT
  Age: 42 Year
  Sex: Female

DRUGS (4)
  1. MERCAPTOPURINE [Interacting]
     Active Substance: MERCAPTOPURINE
     Indication: Postcolectomy panenteritis
     Dosage: 75 MILLIGRAM, QD
  2. MERCAPTOPURINE [Interacting]
     Active Substance: MERCAPTOPURINE
     Dosage: 50 MILLIGRAM, QD
  3. TIRZEPATIDE [Interacting]
     Active Substance: TIRZEPATIDE
     Indication: Weight increased
     Dosage: 2.5 MILLIGRAM, QW
     Dates: start: 202310
  4. TIRZEPATIDE [Interacting]
     Active Substance: TIRZEPATIDE

REACTIONS (2)
  - Drug interaction [Recovering/Resolving]
  - Hepatotoxicity [Recovering/Resolving]
